FAERS Safety Report 19306157 (Version 7)
Quarter: 2022Q1

REPORT INFORMATION
  Report Type: Report from Study
  Country: KR (occurrence: None)
  Receive Date: 20210526
  Receipt Date: 20220331
  Transmission Date: 20220423
  Serious: Yes (Hospitalization)
  Sender: FDA-Public Use
  Company Number: KR-ROCHE-2832171

PATIENT
  Age: 62 Year
  Sex: Male

DRUGS (16)
  1. ATEZOLIZUMAB [Suspect]
     Active Substance: ATEZOLIZUMAB
     Indication: Oesophageal cancer metastatic
     Dosage: START DATE OF MOST RECENT DOSE OF STUDY DRUG PRIOR TO AE: 12/MAY/2021
     Route: 041
     Dates: start: 20210512
  2. CISPLATIN [Suspect]
     Active Substance: CISPLATIN
     Indication: Oesophageal cancer metastatic
     Dosage: START DATE OF MOST RECENT DOSE (120.8 MG) OF STUDY DRUG PRIOR TO AE: 12/MAY/2021
     Route: 042
     Dates: start: 20210512
  3. FLUOROURACIL [Suspect]
     Active Substance: FLUOROURACIL
     Indication: Oesophageal cancer metastatic
     Dosage: START DATE OF MOST RECENT DOSE OF STUDY DRUG 1510 MG PRIOR TO AE: 12/MAY/2021
     Route: 042
     Dates: start: 20210512
  4. TIRAGOLUMAB [Suspect]
     Active Substance: TIRAGOLUMAB
     Indication: Oesophageal cancer metastatic
     Dosage: START DATE OF MOST RECENT DOSE OF STUDY DRUG PRIOR TO AE: 12/MAY/2021
     Route: 042
     Dates: start: 20210512
  5. APREPITANT [Concomitant]
     Active Substance: APREPITANT
     Dates: start: 20210512, end: 20210602
  6. METOCLOPRAMIDE [Concomitant]
     Active Substance: METOCLOPRAMIDE
     Indication: Nausea
     Dates: start: 20210513, end: 20210602
  7. MANNITOL [Concomitant]
     Active Substance: MANNITOL
     Dates: start: 20210512, end: 20210602
  8. FUROSEMIDE [Concomitant]
     Active Substance: FUROSEMIDE
     Dates: start: 20210512, end: 20210602
  9. PALONOSETRON [Concomitant]
     Active Substance: PALONOSETRON
     Dates: start: 20210512, end: 20210602
  10. LOPERAMIDE [Concomitant]
     Active Substance: LOPERAMIDE
     Indication: Diarrhoea
     Dates: start: 20210513, end: 20210517
  11. OLANZAPINE [Concomitant]
     Active Substance: OLANZAPINE
     Indication: Vomiting
     Dates: start: 20210514, end: 20210519
  12. MAGNESIUM SULFATE [Concomitant]
     Active Substance: MAGNESIUM SULFATE
     Indication: Hypomagnesaemia
     Dates: start: 20210515, end: 20210522
  13. KCL [Concomitant]
     Active Substance: POTASSIUM CHLORIDE
     Indication: Hypokalaemia
     Dates: start: 20210516, end: 20210518
  14. TOLVAPTAN [Concomitant]
     Active Substance: TOLVAPTAN
     Dates: start: 20210519, end: 20210526
  15. DEXTROSE;POTASSIUM CHLORIDE;SODIUM CHLORIDE [Concomitant]
     Dates: start: 20210512, end: 20210512
  16. ENCOVER [Concomitant]
     Indication: Decreased appetite
     Dates: start: 20210515

REACTIONS (1)
  - Hyponatraemia [Recovered/Resolved]

NARRATIVE: CASE EVENT DATE: 20210515
